FAERS Safety Report 13292519 (Version 1)
Quarter: 2017Q1

REPORT INFORMATION
  Report Type: Spontaneous
  Country: US (occurrence: US)
  Receive Date: 20170303
  Receipt Date: 20170303
  Transmission Date: 20170428
  Serious: Yes (Life-Threatening, Hospitalization)
  Sender: FDA-Public Use
  Company Number: None

PATIENT
  Age: 37 Year
  Sex: Female
  Weight: 85.5 kg

DRUGS (21)
  1. LAMICTAL [Concomitant]
     Active Substance: LAMOTRIGINE
  2. PROTONIX [Concomitant]
     Active Substance: PANTOPRAZOLE SODIUM
  3. PROBIOTIC [Concomitant]
     Active Substance: PROBIOTICS NOS
  4. VITAMIN D3 [Concomitant]
     Active Substance: CHOLECALCIFEROL
  5. BIOTIN [Concomitant]
     Active Substance: BIOTIN
  6. MELATONIN [Concomitant]
     Active Substance: MELATONIN
  7. LATUDA [Suspect]
     Active Substance: LURASIDONE HYDROCHLORIDE
     Indication: BIPOLAR I DISORDER
     Dosage: ?          QUANTITY:1 TABLET(S);?
     Route: 048
     Dates: start: 20121030, end: 20170222
  8. IMITREX [Concomitant]
     Active Substance: SUMATRIPTAN SUCCINATE
  9. CRANBERRY SUPPLEMENT [Concomitant]
  10. B6 [Concomitant]
     Active Substance: PYRIDOXINE HYDROCHLORIDE
  11. TYLENOL [Concomitant]
     Active Substance: ACETAMINOPHEN
  12. ZYRTEC [Concomitant]
     Active Substance: CETIRIZINE HYDROCHLORIDE
  13. FOLIC ACID. [Concomitant]
     Active Substance: FOLIC ACID
  14. EXCEDRINE [Concomitant]
  15. CLONAZAPAM [Concomitant]
     Active Substance: CLONAZEPAM
  16. ASPRIN [Concomitant]
     Active Substance: ASPIRIN
  17. CELEBREX [Concomitant]
     Active Substance: CELECOXIB
  18. ATARAX [Concomitant]
     Active Substance: HYDROXYZINE HYDROCHLORIDE
  19. SINGULAIR [Concomitant]
     Active Substance: MONTELUKAST SODIUM
  20. PHENERGAN [Concomitant]
     Active Substance: PROMETHAZINE HYDROCHLORIDE
  21. FISH OIL [Concomitant]
     Active Substance: FISH OIL

REACTIONS (2)
  - Self-injurious ideation [None]
  - Suicidal ideation [None]

NARRATIVE: CASE EVENT DATE: 20170223
